FAERS Safety Report 17418601 (Version 1)
Quarter: 2020Q1

REPORT INFORMATION
  Report Type: Spontaneous
  Country: US (occurrence: US)
  Receive Date: 20200130
  Receipt Date: 20200130
  Transmission Date: 20200409
  Serious: Yes (Life-Threatening, Hospitalization)
  Sender: FDA-Public Use
  Company Number: None

PATIENT
  Age: 82 Year
  Sex: Male
  Weight: 69.85 kg

DRUGS (1)
  1. OXCARBAZEPINE. [Suspect]
     Active Substance: OXCARBAZEPINE
     Indication: TRIGEMINAL NEURALGIA
     Dates: start: 20190713, end: 20190719

REACTIONS (8)
  - Trigeminal neuralgia [None]
  - Nausea [None]
  - Asthenia [None]
  - Urinary tract disorder [None]
  - Hypophagia [None]
  - Paraesthesia [None]
  - Vomiting [None]
  - Hyponatraemia [None]

NARRATIVE: CASE EVENT DATE: 20190723
